FAERS Safety Report 20292488 (Version 1)
Quarter: 2022Q1

REPORT INFORMATION
  Report Type: Spontaneous
  Country: US (occurrence: US)
  Receive Date: 20220104
  Receipt Date: 20220104
  Transmission Date: 20220424
  Serious: No
  Sender: FDA-Public Use
  Company Number: US-GALDERMA-US2021016347

PATIENT

DRUGS (6)
  1. PROACTIV MD ADAPALENE ACNE TREATMENT [Suspect]
     Active Substance: ADAPALENE
     Indication: Product used for unknown indication
     Dosage: 1 DOSAGE FORM, 2 OR MORE TIMES A WEEK
     Route: 061
     Dates: start: 202104, end: 202108
  2. PROACTIV MD DAILY OIL CONTROL SPF 30 [Suspect]
     Active Substance: AVOBENZONE\OCTISALATE\OCTOCRYLENE
     Indication: Product used for unknown indication
     Dosage: 1 DOSAGE FORM, CUTANEOUS SOLUTION, 2 OR MORE TIMES A WEEK
     Route: 061
     Dates: start: 202104, end: 202108
  3. PROACTIV DEEP CLEANSING WASH [Concomitant]
     Active Substance: SALICYLIC ACID
     Indication: Product used for unknown indication
     Dosage: 1 DOSAGE FORM, 2 OR MORE TIMES A WEEK
     Route: 061
     Dates: start: 202104, end: 202108
  4. Proactiv MD Ultra Gentle Cleanser [Concomitant]
     Indication: Product used for unknown indication
     Dosage: 1 DOSAGE FORM, 2 OR MORE TIMES A WEEK
     Route: 061
     Dates: start: 202104, end: 202108
  5. Proactiv Redness Relief Serum [Concomitant]
     Indication: Product used for unknown indication
     Dosage: 1 DOSAGE FORM, 2 OR MORE TIMES A WEEK
     Route: 061
     Dates: start: 202104, end: 202108
  6. VITAMINS [Concomitant]
     Active Substance: VITAMINS
     Indication: Product used for unknown indication
     Route: 065

REACTIONS (5)
  - Skin burning sensation [Recovered/Resolved]
  - Pain of skin [Recovered/Resolved]
  - Erythema [Recovered/Resolved]
  - Underdose [Recovered/Resolved]
  - Inappropriate schedule of product administration [Recovered/Resolved]

NARRATIVE: CASE EVENT DATE: 20210401
